FAERS Safety Report 6992040-3 (Version None)
Quarter: 2010Q3

REPORT INFORMATION
  Report Type: 
  Country: None (occurrence: None)
  Receive Date: 20100917
  Receipt Date: 20100910
  Transmission Date: 20110219
  Serious: Yes (Other)
  Sender: FDA-Public Use
  Company Number: US-PFIZER INC-2010115150

PATIENT
  Sex: Male
  Weight: 95.238 kg

DRUGS (3)
  1. LIPITOR [Suspect]
     Indication: BLOOD CHOLESTEROL INCREASED
     Dosage: 40 MG, 1X/DAY
     Dates: start: 20040101
  2. TOPROL-XL [Concomitant]
     Indication: HYPERTENSION
     Dosage: 25 MG, 1X/DAY
  3. LOTREL [Concomitant]
     Indication: HYPERTENSION
     Dosage: [AMLODIPINE 10]/[BENAZEPRIL 20], UNK

REACTIONS (5)
  - ARTHRALGIA [None]
  - CORONARY ARTERY OCCLUSION [None]
  - FATIGUE [None]
  - MYALGIA [None]
  - STENT PLACEMENT [None]
